FAERS Safety Report 4622737-1 (Version None)
Quarter: 2005Q1

REPORT INFORMATION
  Report Type: 
  Country: None (occurrence: None)
  Receive Date: 20050329
  Receipt Date: 20050329
  Transmission Date: 20050727
  Serious: No
  Sender: FDA-Public Use
  Company Number: None

PATIENT
  Sex: Female
  Weight: 118.6 kg

DRUGS (1)
  1. GEMCITABINE [Suspect]
     Dosage: 1000 MG/M2 IV OVER 30 MIN. Q WK X 7
     Route: 042
     Dates: start: 20050208

REACTIONS (6)
  - ASCITES [None]
  - BLOOD CREATINE INCREASED [None]
  - CELLULITIS [None]
  - ORAL INTAKE REDUCED [None]
  - PAIN IN EXTREMITY [None]
  - RENAL FAILURE [None]
